FAERS Safety Report 20963107 (Version 3)
Quarter: 2022Q2

REPORT INFORMATION
  Report Type: Spontaneous
  Country: NZ (occurrence: NZ)
  Receive Date: 20220615
  Receipt Date: 20220624
  Transmission Date: 20220720
  Serious: Yes (Hospitalization, Other)
  Sender: FDA-Public Use
  Company Number: NZ-BoehringerIngelheim-2022-BI-176417

PATIENT
  Age: 69 Year
  Sex: Female
  Weight: 120 kg

DRUGS (1)
  1. JARDIANCE [Suspect]
     Active Substance: EMPAGLIFLOZIN
     Indication: Type 2 diabetes mellitus
     Dates: start: 20210315, end: 202204

REACTIONS (6)
  - Necrotising fasciitis [Recovering/Resolving]
  - Pain [Unknown]
  - Urinary incontinence [Unknown]
  - Arthralgia [Unknown]
  - Diabetes mellitus inadequate control [Unknown]
  - Pyrexia [Unknown]

NARRATIVE: CASE EVENT DATE: 20220419
